FAERS Safety Report 17037310 (Version 2)
Quarter: 2019Q4

REPORT INFORMATION
  Report Type: Spontaneous
  Country: US (occurrence: US)
  Receive Date: 20191115
  Receipt Date: 20191213
  Transmission Date: 20200122
  Serious: No
  Sender: FDA-Public Use
  Company Number: US-PFIZER INC-2019489253

PATIENT
  Age: 62 Year
  Sex: Female

DRUGS (1)
  1. EMBEDA [Suspect]
     Active Substance: MORPHINE SULFATE\NALTREXONE HYDROCHLORIDE
     Indication: PAIN
     Dosage: 30 MG, 2X/DAY (MORNING AND NIGHT)
     Dates: end: 2019

REACTIONS (1)
  - Inappropriate schedule of product administration [Unknown]
